FAERS Safety Report 8286022-1 (Version None)
Quarter: 2012Q2

REPORT INFORMATION
  Report Type: 
  Country: None (occurrence: None)
  Receive Date: 20120416
  Receipt Date: 20120406
  Transmission Date: 20120825
  Serious: Yes (Hospitalization)
  Sender: FDA-Public Use
  Company Number: US-BIOGENIDEC-2012BI012665

PATIENT
  Age: 36 Year
  Sex: Female

DRUGS (3)
  1. GABAPENTIN [Concomitant]
  2. TYSABRI [Suspect]
     Indication: MULTIPLE SCLEROSIS
     Route: 042
     Dates: start: 20071130
  3. CYMBALTA [Concomitant]

REACTIONS (8)
  - GASTROOESOPHAGEAL REFLUX DISEASE [None]
  - NAUSEA [None]
  - PHANTOM PAIN [None]
  - IMPAIRED GASTRIC EMPTYING [None]
  - HIATUS HERNIA [None]
  - ABDOMINAL PAIN [None]
  - CONVULSION [None]
  - ANXIETY [None]
